FAERS Safety Report 8200330-1 (Version None)
Quarter: 2012Q1

REPORT INFORMATION
  Report Type: 
  Country: None (occurrence: None)
  Receive Date: 20120312
  Receipt Date: 20120302
  Transmission Date: 20120608
  Serious: Yes (Hospitalization, Other)
  Sender: FDA-Public Use
  Company Number: JP-PFIZER INC-2012006293

PATIENT
  Age: 38 Year
  Sex: Male
  Weight: 66 kg

DRUGS (5)
  1. MILAX [Concomitant]
     Indication: ANXIETY DISORDER
     Dosage: UNK
     Route: 048
     Dates: end: 20111211
  2. VARENICLINE TARTRATE [Suspect]
     Indication: SMOKING CESSATION THERAPY
     Dosage: 0.5 MG, 1X/DAY
     Route: 048
     Dates: start: 20111031, end: 20111104
  3. PROPECIA [Concomitant]
     Indication: ALOPECIA
     Dosage: UNK
     Route: 048
     Dates: end: 20111211
  4. ALMARL [Concomitant]
     Indication: HYPERTENSION
     Dosage: UNK
     Route: 048
     Dates: end: 20111211
  5. VARENICLINE TARTRATE [Suspect]
     Dosage: 1 MG, 1X/DAY
     Route: 048
     Dates: start: 20111105, end: 20111120

REACTIONS (11)
  - HEPATITIS FULMINANT [None]
  - SPLENOMEGALY [None]
  - SPLENIC NEOPLASM MALIGNANCY UNSPECIFIED [None]
  - HEPATIC ENCEPHALOPATHY [None]
  - CHRONIC HEPATITIS [None]
  - HYPOPROTEINAEMIA [None]
  - HEPATOMEGALY [None]
  - PANCREATIC DISORDER [None]
  - LIVER DISORDER [None]
  - COMA HEPATIC [None]
  - GALLBLADDER DISORDER [None]
